FAERS Safety Report 10263311 (Version 2)
Quarter: 2014Q2

REPORT INFORMATION
  Report Type: Report from Study
  Country: US (occurrence: US)
  Receive Date: 20140626
  Receipt Date: 20140626
  Transmission Date: 20141212
  Serious: Yes (Other)
  Sender: FDA-Public Use
  Company Number: US-MYLANLABS-2013S1000124

PATIENT
  Age: 20 Year
  Sex: Male
  Weight: 69.4 kg

DRUGS (4)
  1. CLOZAPINE TABLETS [Suspect]
     Indication: SCHIZOPHRENIA, PARANOID TYPE
     Dates: end: 20130717
  2. CLOZAPINE TABLETS [Suspect]
     Indication: SCHIZOPHRENIA, PARANOID TYPE
     Dates: start: 20130724
  3. DEPAKOTE [Concomitant]
     Indication: AFFECTIVE DISORDER
  4. PROPRANOLOL [Concomitant]
     Indication: ANXIETY

REACTIONS (1)
  - Granulocytopenia [Not Recovered/Not Resolved]
